FAERS Safety Report 21937355 (Version 2)
Quarter: 2023Q1

REPORT INFORMATION
  Report Type: Report from Study
  Country: US (occurrence: US)
  Receive Date: 20230201
  Receipt Date: 20230323
  Transmission Date: 20230417
  Serious: Yes (Hospitalization, Other)
  Sender: FDA-Public Use
  Company Number: US-BIOVITRUM-2022US10942

PATIENT
  Age: 22 Year
  Sex: Female

DRUGS (5)
  1. KINERET [Suspect]
     Active Substance: ANAKINRA
     Indication: Status epilepticus
     Dates: start: 20220317
  2. KINERET [Suspect]
     Active Substance: ANAKINRA
     Indication: Epilepsy
     Dates: start: 2021
  3. KINERET [Suspect]
     Active Substance: ANAKINRA
     Dates: start: 202203
  4. KINERET [Suspect]
     Active Substance: ANAKINRA
  5. KINERET [Suspect]
     Active Substance: ANAKINRA
     Route: 065
     Dates: start: 20220303

REACTIONS (4)
  - Seizure [Unknown]
  - Off label use [Unknown]
  - Injection site scar [Unknown]
  - Product use issue [Unknown]

NARRATIVE: CASE EVENT DATE: 20220317
